FAERS Safety Report 8547341-4 (Version None)
Quarter: 2012Q3

REPORT INFORMATION
  Report Type: 
  Country: None (occurrence: None)
  Receive Date: 20120727
  Receipt Date: 20120320
  Transmission Date: 20120928
  Serious: No
  Sender: FDA-Public Use
  Company Number: US-ASTRAZENECA-2012SE19170

PATIENT
  Age: 44 Year
  Sex: Female

DRUGS (4)
  1. SEROQUEL XR [Suspect]
     Dosage: FOUR TABLETS AT BED TIME
     Route: 048
  2. SEROQUEL XR [Suspect]
     Indication: BIPOLAR DISORDER
     Dosage: THREE TABLETS AT BED TIME
     Route: 048
  3. SEROQUEL XR [Suspect]
     Dosage: FOUR TABLETS AT BED TIME
     Route: 048
  4. SEROQUEL XR [Suspect]
     Indication: SLEEP DISORDER
     Dosage: THREE TABLETS AT BED TIME
     Route: 048

REACTIONS (2)
  - FEELING ABNORMAL [None]
  - PNEUMONIA [None]
